FAERS Safety Report 5390604-4 (Version None)
Quarter: 2007Q3

REPORT INFORMATION
  Report Type: 
  Country: None (occurrence: None)
  Receive Date: 20070718
  Receipt Date: 20070706
  Transmission Date: 20080115
  Serious: Yes (Other)
  Sender: FDA-Public Use
  Company Number: US-PFIZER INC-2007056968

PATIENT
  Sex: Female
  Weight: 120.45 kg

DRUGS (6)
  1. CHANTIX [Suspect]
     Indication: SMOKING CESSATION THERAPY
     Dates: start: 20070101, end: 20070201
  2. GLUCOPHAGE [Concomitant]
  3. AVANDIA [Concomitant]
  4. ASPIRIN [Concomitant]
  5. MULTIVITAMIN [Concomitant]
  6. WELLBUTRIN [Concomitant]

REACTIONS (2)
  - ANKLE FRACTURE [None]
  - BLOOD GLUCOSE ABNORMAL [None]
